FAERS Safety Report 5440788-4 (Version None)
Quarter: 2007Q3

REPORT INFORMATION
  Report Type: 
  Country: None (occurrence: None)
  Receive Date: 20070731
  Receipt Date: 20070523
  Transmission Date: 20080115
  Serious: No
  Sender: FDA-Public Use
  Company Number: US200705006160

PATIENT
  Age: 63 Year
  Sex: Male
  Weight: 81.6 kg

DRUGS (8)
  1. BYETTA [Suspect]
     Indication: TYPE 2 DIABETES MELLITUS
     Dosage: 5 UG, 2/D, SUBCUTANEOUS; 10 UG, 2/D,  SUBCUTANEOUS
     Route: 058
     Dates: start: 20070101, end: 20070201
  2. BYETTA [Suspect]
     Indication: TYPE 2 DIABETES MELLITUS
     Dosage: 5 UG, 2/D, SUBCUTANEOUS; 10 UG, 2/D,  SUBCUTANEOUS
     Route: 058
     Dates: start: 20070201
  3. EXENATIDE PEN (EXENATIDE PEN) [Concomitant]
  4. METFORMIN HCL [Concomitant]
  5. LANTUS [Concomitant]
  6. LISINOPRIL [Concomitant]
  7. HUMULIN N [Concomitant]
  8. HUMULIN R [Concomitant]

REACTIONS (9)
  - ACCIDENTAL OVERDOSE [None]
  - ANOREXIA [None]
  - ENDODONTIC PROCEDURE [None]
  - FEELING ABNORMAL [None]
  - INCORRECT DOSE ADMINISTERED [None]
  - NAUSEA [None]
  - STOMACH DISCOMFORT [None]
  - TOOTH INFECTION [None]
  - WEIGHT DECREASED [None]
